FAERS Safety Report 8296587-1 (Version None)
Quarter: 2012Q2

REPORT INFORMATION
  Report Type: 
  Country: None (occurrence: None)
  Receive Date: 20120418
  Receipt Date: 20120418
  Transmission Date: 20120825
  Serious: Yes (Other)
  Sender: FDA-Public Use
  Company Number: None

PATIENT
  Sex: Female
  Weight: 52.163 kg

DRUGS (1)
  1. VYVANSE [Suspect]
     Indication: ATTENTION DEFICIT/HYPERACTIVITY DISORDER
     Dosage: 70MG
     Route: 048
     Dates: start: 20080101, end: 20120416

REACTIONS (8)
  - ANGER [None]
  - PARANOIA [None]
  - BRUXISM [None]
  - IRRITABILITY [None]
  - MOOD SWINGS [None]
  - DELUSION [None]
  - ASTHENIA [None]
  - POOR PERSONAL HYGIENE [None]
